FAERS Safety Report 18352172 (Version 1)
Quarter: 2020Q4

REPORT INFORMATION
  Report Type: Spontaneous
  Country: US (occurrence: US)
  Receive Date: 20201006
  Receipt Date: 20201006
  Transmission Date: 20210114
  Serious: No
  Sender: FDA-Public Use
  Company Number: US-ALLERGAN-2020450US

PATIENT
  Age: 79 Year
  Sex: Female

DRUGS (3)
  1. MIRALAX [Concomitant]
     Active Substance: POLYETHYLENE GLYCOL 3350
  2. LINZESS [Suspect]
     Active Substance: LINACLOTIDE
     Indication: CONSTIPATION
     Dosage: 145 ?G, QD
     Route: 065
     Dates: start: 20200513, end: 20200602
  3. LINZESS [Suspect]
     Active Substance: LINACLOTIDE
     Indication: INTESTINAL OBSTRUCTION

REACTIONS (3)
  - Off label use [Unknown]
  - Gastrointestinal motility disorder [Unknown]
  - Abdominal discomfort [Unknown]

NARRATIVE: CASE EVENT DATE: 20200517
